FAERS Safety Report 4673202-7 (Version None)
Quarter: 2005Q2

REPORT INFORMATION
  Report Type: 
  Country: None (occurrence: None)
  Receive Date: 20050525
  Receipt Date: 20041108
  Transmission Date: 20051028
  Serious: No
  Sender: FDA-Public Use
  Company Number: US-GLAXOSMITHKLINE-A0533265A

PATIENT
  Age: 1 Month

DRUGS (1)
  1. BACTROBAN [Suspect]
     Indication: IMPETIGO
     Route: 061

REACTIONS (1)
  - RASH [None]
